FAERS Safety Report 16748832 (Version 2)
Quarter: 2019Q3

REPORT INFORMATION
  Report Type: Spontaneous
  Country: FR (occurrence: FR)
  Receive Date: 20190828
  Receipt Date: 20190920
  Transmission Date: 20191005
  Serious: Yes (Hospitalization)
  Sender: FDA-Public Use
  Company Number: FR-UCBSA-2019035940

PATIENT
  Age: 38 Year
  Sex: Female

DRUGS (4)
  1. TEGRETOL [Suspect]
     Active Substance: CARBAMAZEPINE
     Indication: POISONING DELIBERATE
     Dosage: UNK
     Route: 048
     Dates: start: 20190714, end: 20190714
  2. URBANYL [Suspect]
     Active Substance: CLOBAZAM
     Indication: POISONING DELIBERATE
     Dosage: 60 DOSAGE FORM, TOTAL
     Route: 048
     Dates: start: 20190714, end: 20190714
  3. VIMPAT [Suspect]
     Active Substance: LACOSAMIDE
     Indication: PRODUCT USED FOR UNKNOWN INDICATION
     Dosage: 28 DOSAGE FORM, TOTAL
     Route: 048
     Dates: start: 20190714, end: 20190714
  4. KEPPRA [Suspect]
     Active Substance: LEVETIRACETAM
     Indication: PRODUCT USED FOR UNKNOWN INDICATION
     Dosage: 1 DOSAGE FORM, TOTAL
     Route: 048
     Dates: start: 20190714, end: 20190714

REACTIONS (6)
  - Aphasia [Unknown]
  - Poisoning deliberate [Recovered/Resolved]
  - Tachycardia [Unknown]
  - Overdose [Unknown]
  - Somnolence [Unknown]
  - Dysarthria [Unknown]

NARRATIVE: CASE EVENT DATE: 20190714
